FAERS Safety Report 4574231-4 (Version None)
Quarter: 2005Q1

REPORT INFORMATION
  Report Type: 
  Country: None (occurrence: None)
  Receive Date: 20050204
  Receipt Date: 20050126
  Transmission Date: 20050727
  Serious: Yes (Other)
  Sender: FDA-Public Use
  Company Number: 2005020587

PATIENT
  Age: 44 Year
  Sex: Female
  Weight: 77.1115 kg

DRUGS (7)
  1. NEURONTIN [Suspect]
     Indication: BACK PAIN
     Dosage: (300 MG), ORAL
     Route: 048
     Dates: start: 20031101
  2. NAPROXEN [Concomitant]
  3. VICODIN [Concomitant]
  4. PROPACET 100 [Concomitant]
  5. CARISOPRODOL [Concomitant]
  6. FEXOFENADINE HYDROCHLORIDE [Concomitant]
  7. ROFECOXIB [Concomitant]

REACTIONS (5)
  - ALOPECIA [None]
  - DISEASE RECURRENCE [None]
  - INTERVERTEBRAL DISC PROTRUSION [None]
  - PAIN IN EXTREMITY [None]
  - SURGICAL PROCEDURE REPEATED [None]
